FAERS Safety Report 6292566-4 (Version None)
Quarter: 2009Q3

REPORT INFORMATION
  Report Type: 
  Country: None (occurrence: None)
  Receive Date: 20090731
  Receipt Date: 20090725
  Transmission Date: 20100115
  Serious: Yes (Disabling)
  Sender: FDA-Public Use
  Company Number: US-BAYER-200928116NA

PATIENT
  Age: 41 Year
  Sex: Male
  Weight: 75 kg

DRUGS (1)
  1. CIPRO [Suspect]
     Indication: ENTEROCOLITIS INFECTIOUS
     Dosage: TOTAL DAILY DOSE: 1000 MG  UNIT DOSE: 500 MG
     Route: 048
     Dates: start: 20090711, end: 20090717

REACTIONS (4)
  - ARTHRALGIA [None]
  - BEDRIDDEN [None]
  - INSOMNIA [None]
  - JOINT SWELLING [None]
